FAERS Safety Report 25354343 (Version 1)
Quarter: 2025Q2

REPORT INFORMATION
  Report Type: Spontaneous
  Country: CN (occurrence: CN)
  Receive Date: 20250523
  Receipt Date: 20250523
  Transmission Date: 20250716
  Serious: Yes (Disabling)
  Sender: NOVARTIS
  Company Number: CN-002147023-NVSC2025CN083216

PATIENT
  Age: 78 Year
  Sex: Female
  Weight: 62 kg

DRUGS (1)
  1. SACUBITRIL\VALSARTAN [Suspect]
     Active Substance: SACUBITRIL\VALSARTAN
     Indication: Cardiac failure
     Dosage: 0.200 G, QD
     Route: 048
     Dates: start: 20210102, end: 20250502

REACTIONS (2)
  - Hyperkalaemia [Recovering/Resolving]
  - Electrolyte imbalance [Unknown]

NARRATIVE: CASE EVENT DATE: 20250502
